FAERS Safety Report 15362792 (Version 1)
Quarter: 2018Q3

REPORT INFORMATION
  Report Type: Spontaneous
  Country: US (occurrence: US)
  Receive Date: 20180831
  Receipt Date: 20180831
  Transmission Date: 20181010
  Serious: No
  Sender: FDA-Public Use
  Company Number: None

PATIENT
  Age: 68 Year
  Sex: Female
  Weight: 87.09 kg

DRUGS (4)
  1. METFORMIN [Concomitant]
     Active Substance: METFORMIN HYDROCHLORIDE
  2. VALSARTAN 320MG TABLETS [Suspect]
     Active Substance: VALSARTAN
     Indication: HYPERTENSION
     Dosage: ?          QUANTITY:30 PILLS;?
     Route: 048
     Dates: start: 201801, end: 20180721
  3. LOSARTAN. [Concomitant]
     Active Substance: LOSARTAN
  4. SPIRONOLACTONE. [Concomitant]
     Active Substance: SPIRONOLACTONE

REACTIONS (5)
  - Pain in extremity [None]
  - Withdrawal syndrome [None]
  - Hot flush [None]
  - Cardiac flutter [None]
  - Muscle spasms [None]

NARRATIVE: CASE EVENT DATE: 20180110
